FAERS Safety Report 9445225 (Version 1)
Quarter: 2013Q3

REPORT INFORMATION
  Report Type: Spontaneous
  Country: JP (occurrence: JP)
  Receive Date: 20130807
  Receipt Date: 20130807
  Transmission Date: 20140515
  Serious: Yes (Hospitalization)
  Sender: FDA-Public Use
  Company Number: JP-GLAXOSMITHKLINE-B0909982A

PATIENT
  Age: 35 Year
  Sex: Female

DRUGS (6)
  1. PAXIL [Suspect]
     Indication: DEPRESSION
     Dosage: 20MG PER DAY
     Route: 048
     Dates: end: 20130710
  2. PAXIL [Suspect]
     Indication: DEPRESSION
     Dosage: 20MG PER DAY
     Route: 048
  3. CALMDOWN [Suspect]
     Indication: PRODUCT USED FOR UNKNOWN INDICATION
     Route: 048
  4. U-PAN [Concomitant]
     Route: 048
  5. FAMOSTAGINE [Concomitant]
     Dosage: 10MG PER DAY
     Route: 048
  6. MYSLEE [Concomitant]
     Route: 048

REACTIONS (5)
  - Inappropriate antidiuretic hormone secretion [Recovered/Resolved]
  - Decreased appetite [Unknown]
  - Hyponatraemia [Unknown]
  - Rathke^s cleft cyst [Unknown]
  - Hepatic steatosis [Unknown]
